FAERS Safety Report 11212782 (Version 1)
Quarter: 2015Q2

REPORT INFORMATION
  Report Type: Spontaneous
  Country: AU (occurrence: AU)
  Receive Date: 20150623
  Receipt Date: 20150623
  Transmission Date: 20150821
  Serious: Yes (Other)
  Sender: FDA-Public Use
  Company Number: AU-PFIZER INC-2015198098

PATIENT
  Age: 7 Year
  Sex: Female

DRUGS (3)
  1. ISOPRENALINE [Suspect]
     Active Substance: ISOPROTERENOL HYDROCHLORIDE
     Indication: ATRIOVENTRICULAR BLOCK
     Dosage: 0.18 MCG/KG/MIN OVER 20 MINUTES
     Route: 042
  2. ATROPINE [Concomitant]
     Active Substance: ATROPINE
     Indication: ATRIOVENTRICULAR BLOCK
     Dosage: 0.4 MG, UNK
     Route: 042
  3. PHENYTOIN SODIUM. [Suspect]
     Active Substance: PHENYTOIN SODIUM
     Indication: ATRIOVENTRICULAR BLOCK
     Dosage: 200 MG, UNK
     Route: 042

REACTIONS (3)
  - Ventricular tachycardia [Recovered/Resolved]
  - Drug ineffective for unapproved indication [Not Recovered/Not Resolved]
  - Supraventricular tachycardia [Recovered/Resolved]
